FAERS Safety Report 5219018-4 (Version None)
Quarter: 2007Q1

REPORT INFORMATION
  Report Type: 
  Country: None (occurrence: None)
  Receive Date: 20070125
  Receipt Date: 20070119
  Transmission Date: 20070707
  Serious: Yes (Death, Hospitalization)
  Sender: FDA-Public Use
  Company Number: FR-ELI_LILLY_AND_COMPANY-FR200612001679

PATIENT
  Age: 75 Year
  Sex: Male
  Weight: 57 kg

DRUGS (9)
  1. ALIMTA [Suspect]
     Indication: PLEURAL MESOTHELIOMA MALIGNANT
     Dosage: 500 MG/M2, OTHER
     Route: 042
     Dates: start: 20061026
  2. CISPLATIN [Concomitant]
     Indication: PLEURAL MESOTHELIOMA MALIGNANT
     Dosage: 120 MG, OTHER
     Route: 042
     Dates: start: 20061026
  3. FOLIC ACID [Concomitant]
     Indication: VITAMIN SUPPLEMENTATION
     Route: 065
  4. VITAMIN B-12 [Concomitant]
     Indication: VITAMIN SUPPLEMENTATION
     Route: 065
  5. CORTICOSTEROID NOS [Concomitant]
     Indication: PROPHYLAXIS
     Route: 065
  6. PLAVIX                                  /UNK/ [Concomitant]
     Dosage: UNK, UNKNOWN
     Route: 065
  7. VALSARTAN AND HYDROCHLOROTHIAZIDE [Concomitant]
     Dosage: UNK, UNKNOWN
     Route: 065
  8. ATORVASTATIN CALCIUM [Concomitant]
     Dosage: UNK, UNKNOWN
     Route: 065
  9. OXYCONTIN [Concomitant]
     Dosage: UNK, UNKNOWN
     Route: 065

REACTIONS (4)
  - BLOOD ALKALINE PHOSPHATASE INCREASED [None]
  - GAMMA-GLUTAMYLTRANSFERASE INCREASED [None]
  - INTERSTITIAL LUNG DISEASE [None]
  - RESPIRATORY DISTRESS [None]
